FAERS Safety Report 5545357-3 (Version None)
Quarter: 2007Q4

REPORT INFORMATION
  Report Type: 
  Country: None (occurrence: None)
  Receive Date: 20071211
  Receipt Date: 20071207
  Transmission Date: 20080405
  Serious: Yes (Other)
  Sender: FDA-Public Use
  Company Number: FR-BRISTOL-MYERS SQUIBB COMPANY-14008403

PATIENT
  Age: 48 Year
  Sex: Male

DRUGS (1)
  1. ELISOR TABS [Suspect]
     Indication: HYPERCHOLESTEROLAEMIA
     Dates: start: 20070101, end: 20070901

REACTIONS (1)
  - BRONCHOSPASM [None]
